FAERS Safety Report 19474810 (Version 1)
Quarter: 2021Q2

REPORT INFORMATION
  Report Type: Spontaneous
  Country: IN (occurrence: IN)
  Receive Date: 20210630
  Receipt Date: 20210630
  Transmission Date: 20210717
  Serious: Yes (Hospitalization, Other)
  Sender: FDA-Public Use
  Company Number: IN-LUPIN PHARMACEUTICALS INC.-2021-10428

PATIENT
  Age: 38 Year
  Sex: Male

DRUGS (5)
  1. METHYLPREDNISOLONE. [Suspect]
     Active Substance: METHYLPREDNISOLONE
     Indication: COVID-19
     Dosage: 80 MILLIGRAM, QD (IN 240ML SALINE AT 10ML/H)
     Route: 042
  2. REMDESIVIR. [Suspect]
     Active Substance: REMDESIVIR
     Indication: COVID-19
     Dosage: 200 MILLIGRAM (LOADING DOSE)
     Route: 042
  3. SALINE [Suspect]
     Active Substance: SODIUM CHLORIDE
     Indication: COVID-19
     Dosage: 240 MILLILITER
     Route: 065
  4. DEXAMETHASONE. [Suspect]
     Active Substance: DEXAMETHASONE
     Indication: COVID-19
     Dosage: 4 MILLIGRAM
     Route: 065
  5. REMDESIVIR. [Suspect]
     Active Substance: REMDESIVIR
     Dosage: 100 MILLIGRAM, QD
     Route: 065

REACTIONS (4)
  - Orbital infection [Recovering/Resolving]
  - Periorbital cellulitis [Recovering/Resolving]
  - Off label use [Unknown]
  - Mucormycosis [Recovering/Resolving]
